FAERS Safety Report 7364341-0 (Version None)
Quarter: 2011Q1

REPORT INFORMATION
  Report Type: 
  Country: None (occurrence: None)
  Receive Date: 20110321
  Receipt Date: 20101122
  Transmission Date: 20110831
  Serious: No
  Sender: FDA-Public Use
  Company Number: US-ALLERGAN-1015138US

PATIENT
  Age: 26 Year
  Sex: Male

DRUGS (1)
  1. ZYMAXID [Suspect]
     Indication: FOREIGN BODY IN EYE
     Dosage: 1 GTT, TID
     Dates: start: 20101121, end: 20101122

REACTIONS (3)
  - DIPLOPIA [None]
  - PHOTOPHOBIA [None]
  - VISION BLURRED [None]
